FAERS Safety Report 9370398 (Version 2)
Quarter: 2013Q3

REPORT INFORMATION
  Report Type: Report from Study
  Country: US (occurrence: US)
  Receive Date: 20130626
  Receipt Date: 20130905
  Transmission Date: 20140515
  Serious: Yes (Other)
  Sender: FDA-Public Use
  Company Number: US-ABBOTT-13P-163-1066314-00

PATIENT
  Age: 59 Year
  Sex: Female
  Weight: 118.49 kg

DRUGS (29)
  1. HUMIRA [Suspect]
     Indication: PSORIASIS
     Route: 058
     Dates: start: 20121025, end: 201305
  2. VIIBRYD [Concomitant]
     Indication: DEPRESSION
  3. GLUCOPHAGE [Concomitant]
     Indication: DIABETES MELLITUS
  4. CLARITIN [Concomitant]
     Indication: HYPERSENSITIVITY
  5. LASIX [Concomitant]
     Indication: FLUID RETENTION
  6. LEVEMIR [Concomitant]
     Indication: DIABETES MELLITUS
  7. HUMALOG [Concomitant]
     Indication: DIABETES MELLITUS
     Dosage: BY SLIDING SCALE, 3 TIMES A DAY OR MORE
  8. DILAUDID [Concomitant]
     Indication: DIABETIC NEUROPATHY
  9. NORCO [Concomitant]
     Indication: DIABETIC NEUROPATHY
     Dosage: 7.5/325MG
  10. CALCIPOTRIENE [Concomitant]
     Indication: PSORIASIS
  11. KETOCONAZOLE [Concomitant]
     Indication: PSORIASIS
  12. CLOBETASOL [Concomitant]
     Indication: PRODUCT USED FOR UNKNOWN INDICATION
  13. DEXAMETHASONE [Concomitant]
     Indication: PSORIASIS
  14. MUPIROCIN [Concomitant]
     Indication: PSORIASIS
  15. VALIUM [Concomitant]
     Indication: ANXIETY
  16. DICLOFENAC [Concomitant]
     Indication: ANALGESIC INTERVENTION SUPPORTIVE THERAPY
  17. MYLANTA DOUBLE STRENGTH [Concomitant]
     Indication: PRODUCT USED FOR UNKNOWN INDICATION
  18. MILK OF MAGNESIA [Concomitant]
     Indication: PRODUCT USED FOR UNKNOWN INDICATION
  19. VITAMIN B12 [Concomitant]
     Indication: PRODUCT USED FOR UNKNOWN INDICATION
     Dosage: MONTHLY
  20. ICY HOT [Concomitant]
     Indication: ARTHRALGIA
  21. PREPARATION H [Concomitant]
     Indication: HAEMORRHOIDS
  22. MAGNESIUM [Concomitant]
     Indication: MINERAL SUPPLEMENTATION
  23. VIT D [Concomitant]
     Indication: PRODUCT USED FOR UNKNOWN INDICATION
  24. GABAPENTIN [Concomitant]
     Indication: DIABETIC NEUROPATHY
  25. BENADRYL [Concomitant]
     Indication: FEELING OF RELAXATION
     Dosage: TWICE A DAY OR AS NEEDED
  26. DIOVAN HCT [Concomitant]
     Indication: HYPERTENSION
     Dosage: 320-12.5MG DAILY
  27. FLONASE [Concomitant]
     Indication: HYPERSENSITIVITY
     Dosage: EACH NOSTRIL
  28. VISTARIL [Concomitant]
     Indication: FEELING OF RELAXATION
     Dosage: FROM PSYCHIATRIST
  29. AMBIEN [Concomitant]
     Indication: PRODUCT USED FOR UNKNOWN INDICATION
     Dosage: AT SLEEP

REACTIONS (12)
  - Nephropathy [Not Recovered/Not Resolved]
  - Renal impairment [Not Recovered/Not Resolved]
  - Fatigue [Recovered/Resolved]
  - Diarrhoea [Recovered/Resolved]
  - Injection site bruising [Not Recovered/Not Resolved]
  - Injection site haemorrhage [Not Recovered/Not Resolved]
  - Psoriasis [Not Recovered/Not Resolved]
  - Insomnia [Unknown]
  - Bacterial test positive [Recovering/Resolving]
  - Decreased appetite [Not Recovered/Not Resolved]
  - Insomnia [Unknown]
  - Skin depigmentation [Unknown]
